FAERS Safety Report 5420293-1 (Version None)
Quarter: 2007Q3

REPORT INFORMATION
  Report Type: 
  Country: None (occurrence: None)
  Receive Date: 20070820
  Receipt Date: 20070810
  Transmission Date: 20080115
  Serious: Yes (Death, Hospitalization)
  Sender: FDA-Public Use
  Company Number: CH-MERCK-0708CHE00008

PATIENT
  Age: 69 Year
  Sex: Male
  Weight: 95 kg

DRUGS (8)
  1. COZAAR [Suspect]
     Indication: HYPERTENSION
     Route: 048
     Dates: end: 20070618
  2. ATORVASTATIN CALCIUM [Suspect]
     Route: 048
     Dates: end: 20070620
  3. AMLODIPINE MALEATE [Suspect]
     Route: 048
     Dates: end: 20070618
  4. ASPIRIN [Concomitant]
     Route: 048
     Dates: end: 20070607
  5. NEBIVOLOL HYDROCHLORIDE [Concomitant]
     Route: 048
     Dates: end: 20070618
  6. TORSEMIDE [Concomitant]
     Route: 048
     Dates: end: 20070609
  7. INSULIN LISPRO [Concomitant]
     Indication: TYPE 2 DIABETES MELLITUS
     Route: 058
     Dates: end: 20070620
  8. POLYETHYLENE GLYCOL 3350 AND POTASSIUM CHLORIDE AND SODIUM BICARBONATE [Concomitant]
     Route: 048
     Dates: end: 20070609

REACTIONS (2)
  - CEREBRAL HAEMORRHAGE [None]
  - THROMBOCYTOPENIC PURPURA [None]
